FAERS Safety Report 12498887 (Version 1)
Quarter: 2016Q2

REPORT INFORMATION
  Report Type: Spontaneous
  Country: CH (occurrence: CH)
  Receive Date: 20160627
  Receipt Date: 20160627
  Transmission Date: 20160815
  Serious: Yes (Hospitalization, Congenital Anomaly, Other)
  Sender: FDA-Public Use
  Company Number: CH-PFIZER INC-2015056470

PATIENT
  Sex: Male
  Weight: 2.7 kg

DRUGS (8)
  1. ZYPREXA [Suspect]
     Active Substance: OLANZAPINE
     Dosage: 10 MG, 1X/DAY
     Route: 064
  2. ZOLOFT [Suspect]
     Active Substance: SERTRALINE HYDROCHLORIDE
     Indication: DEPRESSION
     Dosage: 100 MG, 1X/DAY
     Route: 064
  3. ZOLPIDEM [Suspect]
     Active Substance: ZOLPIDEM\ZOLPIDEM TARTRATE
     Dosage: 10 MG, 1X/DAY
     Route: 064
  4. TEMESTA [Suspect]
     Active Substance: LORAZEPAM
     Dosage: UNK
     Route: 064
  5. MOTILIUM [Suspect]
     Active Substance: DOMPERIDONE
     Indication: MIGRAINE
     Dosage: 10 MG, 3X/DAY AS NEEDED
     Route: 064
  6. XANAX [Suspect]
     Active Substance: ALPRAZOLAM
     Dosage: 1 MG, 2X/DAY
     Route: 064
  7. NEXIUM [Suspect]
     Active Substance: ESOMEPRAZOLE MAGNESIUM
     Dosage: 40 MG, 1X/DAY
     Route: 064
  8. IMIGRAN [Suspect]
     Active Substance: SUMATRIPTAN SUCCINATE
     Indication: MIGRAINE
     Dosage: 25 MG 3-4 TIMES PER WEEK AS NEEDED
     Route: 064

REACTIONS (6)
  - Foetal malformation [Unknown]
  - Foetal growth restriction [Unknown]
  - Polycythaemia [Unknown]
  - Hypoglycaemia neonatal [Recovered/Resolved]
  - Maternal exposure during pregnancy [Unknown]
  - Thrombocytopenia [Unknown]

NARRATIVE: CASE EVENT DATE: 20150816
